APPROVED DRUG PRODUCT: TIMOLOL MALEATE
Active Ingredient: TIMOLOL MALEATE
Strength: 5MG
Dosage Form/Route: TABLET;ORAL
Application: A072648 | Product #001
Applicant: TEVA PHARMACEUTICALS USA INC
Approved: Jun 16, 1993 | RLD: No | RS: No | Type: DISCN